FAERS Safety Report 9557811 (Version 1)
Quarter: 2013Q3

REPORT INFORMATION
  Report Type: Spontaneous
  Country: US (occurrence: None)
  Receive Date: 20130724
  Receipt Date: 20130724
  Transmission Date: 20140515
  Serious: Yes (Other)
  Sender: FDA-Public Use
  Company Number: PHEH2013US005379

PATIENT
  Sex: Female

DRUGS (2)
  1. GILENYA [Suspect]
     Route: 048
     Dates: start: 20120920
  2. NABUMETONE (RELAFEN) [Concomitant]

REACTIONS (3)
  - Musculoskeletal stiffness [None]
  - White blood cell count decreased [None]
  - Asthenia [None]
